FAERS Safety Report 5616439-2 (Version None)
Quarter: 2008Q1

REPORT INFORMATION
  Report Type: 
  Country: None (occurrence: None)
  Receive Date: 20080207
  Receipt Date: 20080128
  Transmission Date: 20080703
  Serious: Yes (Hospitalization)
  Sender: FDA-Public Use
  Company Number: AT-ELI_LILLY_AND_COMPANY-AT200801006533

PATIENT
  Age: 37 Year
  Sex: Male

DRUGS (7)
  1. OLANZAPINE [Suspect]
     Indication: SCHIZOPHRENIA, PARANOID TYPE
     Dosage: 20 MG, DAILY (1/D)
     Route: 048
     Dates: start: 20071102, end: 20071107
  2. TEMESTA [Concomitant]
     Dosage: 3 MG, DAILY (1/D)
     Dates: start: 20071102, end: 20071103
  3. TEMESTA [Concomitant]
     Dosage: 4.5 MG, DAILY (1/D)
     Dates: start: 20071104, end: 20071104
  4. TEMESTA [Concomitant]
     Dosage: 3.5 MG, DAILY (1/D)
     Dates: start: 20071105, end: 20071105
  5. TEMESTA [Concomitant]
     Dosage: 2.5 MG, DAILY (1/D)
     Dates: start: 20071106, end: 20071107
  6. TEMESTA [Concomitant]
     Dosage: 1 MG, DAILY (1/D)
     Dates: start: 20071108, end: 20071109
  7. TEMESTA [Concomitant]
     Dosage: 0.5 MG, DAILY (1/D)
     Dates: start: 20071110, end: 20071113

REACTIONS (1)
  - VISION BLURRED [None]
